FAERS Safety Report 9989482 (Version 2)
Quarter: 2014Q1

REPORT INFORMATION
  Report Type: Report from Study
  Country: US (occurrence: US)
  Receive Date: 20140310
  Receipt Date: 20140310
  Transmission Date: 20141002
  Serious: No
  Sender: FDA-Public Use
  Company Number: US-ABBVIE-13P-163-1061770-00

PATIENT
  Age: 56 Year
  Sex: Female

DRUGS (14)
  1. HUMIRA [Suspect]
     Indication: COLITIS ULCERATIVE
     Dates: start: 20130205, end: 20130205
  2. HUMIRA [Suspect]
     Dates: start: 20130219, end: 20130219
  3. HUMIRA [Suspect]
  4. LOPRESSOR [Concomitant]
     Indication: TACHYCARDIA
  5. ASACOL [Concomitant]
     Indication: COLITIS ULCERATIVE
  6. ASACOL [Concomitant]
  7. PRAVASTATIN [Concomitant]
     Indication: BLOOD CHOLESTEROL INCREASED
  8. PRILOSEC [Concomitant]
     Indication: DYSPEPSIA
     Dosage: AS NEEDED
  9. PRILOSEC [Concomitant]
     Indication: HIATUS HERNIA
  10. ALIGN [Concomitant]
     Indication: PROBIOTIC THERAPY
  11. VITAMIN D [Concomitant]
     Indication: PRODUCT USED FOR UNKNOWN INDICATION
  12. VITAMIN D [Concomitant]
  13. MULTIVITAMIN [Concomitant]
     Indication: PRODUCT USED FOR UNKNOWN INDICATION
  14. ASA [Concomitant]
     Indication: PROPHYLAXIS

REACTIONS (6)
  - Pyrexia [Recovered/Resolved]
  - Rhinorrhoea [Recovered/Resolved]
  - Paranasal sinus hypersecretion [Recovered/Resolved]
  - Tooth abscess [Recovering/Resolving]
  - Injection site pain [Recovering/Resolving]
  - Headache [Recovered/Resolved]
